FAERS Safety Report 16210284 (Version 3)
Quarter: 2022Q1

REPORT INFORMATION
  Report Type: Other
  Country: CA (occurrence: CA)
  Receive Date: 20190418
  Receipt Date: 20220116
  Transmission Date: 20220424
  Serious: Yes (Other)
  Sender: FDA-Public Use
  Company Number: CA-002147023-PHHY2016CA038532

PATIENT
  Sex: Female

DRUGS (6)
  1. XOLAIR [Suspect]
     Active Substance: OMALIZUMAB
     Indication: Asthma
     Route: 058
     Dates: start: 20140918
  2. XOLAIR [Suspect]
     Active Substance: OMALIZUMAB
     Route: 058
     Dates: start: 201904
  3. XOLAIR [Suspect]
     Active Substance: OMALIZUMAB
     Route: 058
  4. HYDROMORPHONE [Concomitant]
     Active Substance: HYDROMORPHONE
  5. MORPHINE [Concomitant]
     Active Substance: MORPHINE
  6. PENICILLAMINE [Concomitant]
     Active Substance: PENICILLAMINE

REACTIONS (6)
  - Weight decreased [Unknown]
  - Cough [Recovering/Resolving]
  - Influenza [Recovering/Resolving]
  - Eczema [Unknown]
  - Psoriasis [Unknown]
  - Asthma [Recovering/Resolving]
